FAERS Safety Report 17847862 (Version 1)
Quarter: 2020Q2

REPORT INFORMATION
  Report Type: Spontaneous
  Country: US (occurrence: US)
  Receive Date: 20200601
  Receipt Date: 20200601
  Transmission Date: 20200714
  Serious: No
  Sender: FDA-Public Use
  Company Number: US-PFIZER INC-2020213579

PATIENT
  Age: 59 Year
  Sex: Female

DRUGS (1)
  1. PREGABALIN. [Suspect]
     Active Substance: PREGABALIN
     Indication: SPINAL STENOSIS
     Dosage: 100 MG, 4X/DAY (100MG 1 CAPSULE BY MOUTH 4 TIMES DAILY)
     Route: 048

REACTIONS (5)
  - Dyskinesia [Unknown]
  - Drug hypersensitivity [Unknown]
  - Feeling abnormal [Unknown]
  - Pruritus [Unknown]
  - Somnolence [Unknown]
